FAERS Safety Report 7433187-7 (Version None)
Quarter: 2011Q2

REPORT INFORMATION
  Report Type: 
  Country: None (occurrence: None)
  Receive Date: 20110422
  Receipt Date: 20110413
  Transmission Date: 20111010
  Serious: No
  Sender: FDA-Public Use
  Company Number: US-B.I. PHARMACEUTICALS,INC./RIDGEFIELD-2011-BP-06051BP

PATIENT
  Age: 75 Year
  Sex: Female

DRUGS (12)
  1. SPIRIVA [Suspect]
     Indication: DYSPNOEA
     Dosage: 18 MCG
     Route: 055
     Dates: start: 20100106
  2. SPIRIVA [Suspect]
     Indication: CHRONIC OBSTRUCTIVE PULMONARY DISEASE
  3. SPIRIVA [Suspect]
     Indication: SJOGREN'S SYNDROME
  4. METHOTREXATE [Concomitant]
     Indication: RHEUMATOID ARTHRITIS
  5. CALCIUM + D [Concomitant]
  6. NEBULIZER [Concomitant]
  7. FOLIC ACID [Concomitant]
     Dosage: 1 MG
  8. MULTI VIT [Concomitant]
  9. MICARDIS [Concomitant]
  10. ALLERGY SHOTS [Concomitant]
  11. RESTASIS [Concomitant]
     Indication: DRY EYE
  12. FOSAMAX [Concomitant]

REACTIONS (11)
  - RHINORRHOEA [None]
  - ABNORMAL FAECES [None]
  - EAR DISCOMFORT [None]
  - OROPHARYNGEAL PAIN [None]
  - HOT FLUSH [None]
  - COUGH [None]
  - EYE IRRITATION [None]
  - DIZZINESS [None]
  - INCREASED UPPER AIRWAY SECRETION [None]
  - DYSPHONIA [None]
  - MIDDLE INSOMNIA [None]
